FAERS Safety Report 7761255-9 (Version None)
Quarter: 2011Q3

REPORT INFORMATION
  Report Type: 
  Country: None (occurrence: None)
  Receive Date: 20110920
  Receipt Date: 20110912
  Transmission Date: 20111222
  Serious: Yes (Other)
  Sender: FDA-Public Use
  Company Number: FR-PURDUE-GBR-2011-0008796

PATIENT
  Sex: Female

DRUGS (2)
  1. OXYCONTIN [Suspect]
     Indication: PAIN
     Dosage: UNK
     Route: 048
     Dates: start: 20100708, end: 20100713
  2. OXYNORM CAPSULES [Suspect]
     Indication: PAIN
     Dosage: UNK
     Dates: start: 20100708, end: 20100713

REACTIONS (2)
  - TOXIC SKIN ERUPTION [None]
  - ECZEMA [None]
